FAERS Safety Report 21435380 (Version 2)
Quarter: 2022Q4

REPORT INFORMATION
  Report Type: Spontaneous
  Country: JP (occurrence: JP)
  Receive Date: 20221010
  Receipt Date: 20221013
  Transmission Date: 20230113
  Serious: Yes (Hospitalization)
  Sender: FDA-Public Use
  Company Number: JP-CHUGAI-2022038529

PATIENT
  Age: 75 Year
  Sex: Male

DRUGS (3)
  1. TECENTRIQ [Suspect]
     Active Substance: ATEZOLIZUMAB
     Indication: Non-small cell lung cancer
     Route: 041
     Dates: start: 20210413, end: 202206
  2. CARBOPLATIN [Concomitant]
     Active Substance: CARBOPLATIN
     Indication: Non-small cell lung cancer
     Dosage: UNK
     Route: 041
     Dates: start: 20210413, end: 2021
  3. PEMETREXED DISODIUM HEMIPENTAHYDRATE [Concomitant]
     Active Substance: PEMETREXED DISODIUM HEMIPENTAHYDRATE
     Indication: Non-small cell lung cancer
     Dosage: UNK
     Route: 041
     Dates: start: 20210413

REACTIONS (1)
  - Tubulointerstitial nephritis [Recovering/Resolving]

NARRATIVE: CASE EVENT DATE: 20220613
